FAERS Safety Report 13814416 (Version 1)
Quarter: 2017Q3

REPORT INFORMATION
  Report Type: Spontaneous
  Country: US (occurrence: US)
  Receive Date: 20170728
  Receipt Date: 20170728
  Transmission Date: 20171127
  Serious: Yes (Other)
  Sender: FDA-Public Use
  Company Number: None

PATIENT
  Age: 57 Year
  Sex: Male
  Weight: 76.5 kg

DRUGS (2)
  1. PREVASTIN [Concomitant]
  2. TESTOSTERONE INJECTIONS [Suspect]
     Active Substance: TESTOSTERONE
     Indication: ERECTILE DYSFUNCTION
     Dosage: ?          OTHER FREQUENCY:EVERY 2 WEEKS;?
     Route: 030

REACTIONS (2)
  - Mood swings [None]
  - Anger [None]

NARRATIVE: CASE EVENT DATE: 20170601
